FAERS Safety Report 6850289-4 (Version None)
Quarter: 2010Q3

REPORT INFORMATION
  Report Type: 
  Country: None (occurrence: None)
  Receive Date: 20100716
  Receipt Date: 20071012
  Transmission Date: 20110219
  Serious: No
  Sender: FDA-Public Use
  Company Number: US-PFIZER INC-2007087303

PATIENT
  Sex: Female
  Weight: 36.3 kg

DRUGS (1)
  1. CHANTIX [Suspect]
     Dates: start: 20071010

REACTIONS (2)
  - MIDDLE INSOMNIA [None]
  - NAUSEA [None]
